FAERS Safety Report 21245187 (Version 1)
Quarter: 2022Q3

REPORT INFORMATION
  Report Type: Spontaneous
  Country: US (occurrence: US)
  Receive Date: 20220823
  Receipt Date: 20220823
  Transmission Date: 20221026
  Serious: Yes (Other)
  Sender: FDA-Public Use
  Company Number: US-009507513-2208USA007722

PATIENT
  Age: 64 Year
  Sex: Female

DRUGS (4)
  1. CUBICIN [Suspect]
     Active Substance: DAPTOMYCIN
     Indication: Abdominal abscess
     Dosage: 9.6 MILLIGRAM/KILOGRAM, QD
  2. FLUCONAZOLE [Concomitant]
     Active Substance: FLUCONAZOLE
  3. MEROPENEM [Concomitant]
     Active Substance: MEROPENEM
  4. CEFTRIAXONE [Concomitant]
     Active Substance: CEFTRIAXONE

REACTIONS (2)
  - Pathogen resistance [Not Recovered/Not Resolved]
  - Product use in unapproved indication [Unknown]
